FAERS Safety Report 8985304 (Version 1)
Quarter: 2012Q4

REPORT INFORMATION
  Report Type: 
  Country: US (occurrence: US)
  Receive Date: 20121226
  Receipt Date: 20121226
  Transmission Date: 20130627
  Serious: No
  Sender: FDA-Public Use
  Company Number: US-ASTRAZENECA-2012SE94748

PATIENT
  Age: 568 Month
  Sex: Male

DRUGS (4)
  1. NEXIUM [Suspect]
     Route: 048
     Dates: start: 20070113
  2. FLUTICASONE PROPIONATE [Concomitant]
     Dosage: 50 MCG
     Dates: start: 20070121
  3. AZITHROMYCIN [Concomitant]
     Dates: start: 20080116
  4. DURAPHEN II [Concomitant]
     Dosage: 800-25 MG
     Dates: start: 20080116

REACTIONS (2)
  - Radius fracture [Unknown]
  - Periarthritis [Unknown]
